FAERS Safety Report 8911454 (Version 1)
Quarter: 2012Q4

REPORT INFORMATION
  Report Type: 
  Country: US (occurrence: US)
  Receive Date: 20121115
  Receipt Date: 20121115
  Transmission Date: 20130627
  Serious: No
  Sender: FDA-Public Use
  Company Number: US-PFIZER INC-2012282622

PATIENT
  Age: 65 Year
  Sex: Female

DRUGS (2)
  1. RAPAMUNE [Suspect]
     Indication: KIDNEY TRANSPLANT
     Dosage: 3 mg, daily
     Dates: start: 20111109
  2. RAPAMUNE [Suspect]
     Dosage: 4 mg, daily

REACTIONS (1)
  - Blood count abnormal [Unknown]
